FAERS Safety Report 8517757 (Version 3)
Quarter: 2013Q4

REPORT INFORMATION
  Report Type: Spontaneous
  Country: US (occurrence: US)
  Receive Date: 20120417
  Receipt Date: 20131113
  Transmission Date: 20140711
  Serious: No
  Sender: FDA-Public Use
  Company Number: US-ASTRAZENECA-2010SE55210

PATIENT
  Age: 54 Year
  Sex: Female
  Weight: 52.2 kg

DRUGS (5)
  1. NEXIUM [Suspect]
     Indication: GASTROOESOPHAGEAL REFLUX DISEASE
     Route: 048
     Dates: start: 20101117, end: 20131030
  2. ZOLOFT [Concomitant]
  3. ANTIDEPRESSANT [Concomitant]
  4. BLOOD PRESSURE MEDICATION [Concomitant]
  5. MEDICATION FOR MIGRAINES [Concomitant]

REACTIONS (11)
  - Pollakiuria [Unknown]
  - Mental impairment [Unknown]
  - Anxiety [Unknown]
  - Hiatus hernia [Unknown]
  - Adverse drug reaction [Unknown]
  - Feeling abnormal [Unknown]
  - Malaise [Unknown]
  - Depression [Unknown]
  - Insomnia [Unknown]
  - Extra dose administered [Unknown]
  - Intentional drug misuse [Unknown]
